FAERS Safety Report 7637984-4 (Version None)
Quarter: 2011Q3

REPORT INFORMATION
  Report Type: 
  Country: None (occurrence: None)
  Receive Date: 20110722
  Receipt Date: 20110722
  Transmission Date: 20111222
  Serious: Yes (Other)
  Sender: FDA-Public Use
  Company Number: None

PATIENT
  Sex: Female

DRUGS (1)
  1. CALDOLOR [Suspect]
     Indication: HYSTERECTOMY
     Dosage: 800 MG 1 IV
     Route: 042

REACTIONS (1)
  - INCISION SITE HAEMORRHAGE [None]
